FAERS Safety Report 20802608 (Version 1)
Quarter: 2022Q2

REPORT INFORMATION
  Report Type: Spontaneous
  Country: US (occurrence: None)
  Receive Date: 20220509
  Receipt Date: 20220509
  Transmission Date: 20220720
  Serious: Yes (Hospitalization)
  Sender: FDA-Public Use
  Company Number: None

PATIENT
  Age: 84 Year
  Sex: Male

DRUGS (1)
  1. ENOXAPARIN SODIUM [Suspect]
     Active Substance: ENOXAPARIN SODIUM
     Indication: Thrombosis prophylaxis
     Dosage: FREQUENCY : DAILY;?
     Route: 058
     Dates: start: 20220329, end: 20220331

REACTIONS (6)
  - Obstructive pancreatitis [None]
  - Congenital arterial malformation [None]
  - Pulmonary embolism [None]
  - Haemoglobin decreased [None]
  - Hypotension [None]
  - Lactic acidosis [None]

NARRATIVE: CASE EVENT DATE: 20220331
